FAERS Safety Report 13300996 (Version 1)
Quarter: 2017Q1

REPORT INFORMATION
  Report Type: Spontaneous
  Country: US (occurrence: US)
  Receive Date: 20170306
  Receipt Date: 20170306
  Transmission Date: 20170428
  Serious: Yes (Hospitalization)
  Sender: FDA-Public Use
  Company Number: None

PATIENT
  Age: 55 Year
  Sex: Male

DRUGS (13)
  1. MATULANE [Concomitant]
     Active Substance: PROCARBAZINE HYDROCHLORIDE
  2. ASPIRIN. [Concomitant]
     Active Substance: ASPIRIN
  3. GLEOSTINE [Suspect]
     Active Substance: LOMUSTINE
     Indication: BRAIN NEOPLASM MALIGNANT
     Dosage: QD DAY 1 OF CYCLE
     Route: 048
     Dates: start: 20170204
  4. LISINOPRIL. [Concomitant]
     Active Substance: LISINOPRIL
  5. XULANE [Concomitant]
     Active Substance: ETHINYL ESTRADIOL\NORELGESTROMIN
  6. PANTOPRAZOLE [Concomitant]
     Active Substance: PANTOPRAZOLE SODIUM
  7. DIVALPROEX ER [Concomitant]
     Active Substance: DIVALPROEX SODIUM
  8. GLEOSTINE [Suspect]
     Active Substance: LOMUSTINE
     Indication: BRAIN NEOPLASM MALIGNANT
     Dosage: QD DAY 1 OF CYCLE
     Route: 048
     Dates: start: 20170204
  9. LANTUS [Concomitant]
     Active Substance: INSULIN GLARGINE
  10. METFORMIN [Concomitant]
     Active Substance: METFORMIN HYDROCHLORIDE
  11. DEXAMETHASONE. [Concomitant]
     Active Substance: DEXAMETHASONE
  12. LOVASTATIN. [Concomitant]
     Active Substance: LOVASTATIN
  13. HUMALOG [Concomitant]
     Active Substance: INSULIN LISPRO

REACTIONS (1)
  - Cerebrovascular accident [None]

NARRATIVE: CASE EVENT DATE: 201702
